FAERS Safety Report 11743486 (Version 8)
Quarter: 2018Q4

REPORT INFORMATION
  Report Type: Report from Study
  Country: JP (occurrence: JP)
  Receive Date: 20151116
  Receipt Date: 20181220
  Transmission Date: 20190204
  Serious: Yes (Death, Hospitalization)
  Sender: FDA-Public Use
  Company Number: JP-EISAI MEDICAL RESEARCH-EC-2015-012053

PATIENT
  Age: 66 Year
  Sex: Male
  Weight: 38 kg

DRUGS (4)
  1. LENVIMA [Suspect]
     Active Substance: LENVATINIB
     Indication: POORLY DIFFERENTIATED THYROID CARCINOMA
     Route: 048
     Dates: start: 20151020, end: 20151102
  2. LEVOTHYROXINE SODIUM HYDRATE [Concomitant]
     Active Substance: LEVOTHYROXINE SODIUM
  3. E KEPPRA [Concomitant]
     Active Substance: LEVETIRACETAM
  4. LENVIMA [Suspect]
     Active Substance: LENVATINIB
     Route: 048
     Dates: start: 20151109, end: 20151209

REACTIONS (10)
  - Malignant neoplasm progression [Fatal]
  - Tracheal stenosis [Unknown]
  - Peritonitis [Unknown]
  - Gastric haemorrhage [Unknown]
  - Exposure via ingestion [Unknown]
  - Abdominal pain [Unknown]
  - Decreased appetite [Unknown]
  - Dysphagia [Unknown]
  - Gastrointestinal necrosis [Unknown]
  - Gastrointestinal perforation [Not Recovered/Not Resolved]

NARRATIVE: CASE EVENT DATE: 20151101
